FAERS Safety Report 15195958 (Version 1)
Quarter: 2018Q3

REPORT INFORMATION
  Report Type: Spontaneous
  Country: UM (occurrence: US)
  Receive Date: 20180725
  Receipt Date: 20180725
  Transmission Date: 20181010
  Serious: Yes (Other)
  Sender: FDA-Public Use
  Company Number: UM-AUROBINDO-AUR-APL-2018-036713

PATIENT
  Age: 41 Year
  Sex: Male

DRUGS (1)
  1. SILDENAFIL. [Suspect]
     Active Substance: SILDENAFIL
     Indication: PRODUCT USED FOR UNKNOWN INDICATION
     Dosage: CONSUMED 3 TO 4 TIMES HIGHER THAN RECOMMENDED DOSE ()
     Route: 048

REACTIONS (2)
  - Overdose [Recovered/Resolved]
  - Acute macular outer retinopathy [Recovered/Resolved]
